FAERS Safety Report 9041181 (Version 1)
Quarter: 2013Q1

REPORT INFORMATION
  Report Type: Spontaneous
  Country: US (occurrence: None)
  Receive Date: 20130124
  Receipt Date: 20130124
  Transmission Date: 20140127
  Serious: Yes (Life-Threatening, Hospitalization, Disabling)
  Sender: FDA-Public Use
  Company Number: None

PATIENT
  Sex: Male
  Weight: 83.01 kg

DRUGS (1)
  1. PHENYOTOIN SODIUM DILANTIN MYLAN PHARMACE [Suspect]
     Indication: CONVULSION
     Dosage: 700MG  EVERY OTHER DAY CAPSULE
     Dates: start: 1997, end: 2008

REACTIONS (2)
  - Toxicity to various agents [None]
  - Neurogenic bladder [None]
